FAERS Safety Report 9705043 (Version 1)
Quarter: 2013Q4

REPORT INFORMATION
  Report Type: Report from Study
  Country: US (occurrence: US)
  Receive Date: 20131122
  Receipt Date: 20131122
  Transmission Date: 20140711
  Serious: No
  Sender: FDA-Public Use
  Company Number: US-ABBVIE-13P-163-1134039-00

PATIENT
  Sex: Male
  Weight: 75.82 kg

DRUGS (6)
  1. ANDROGEL [Suspect]
     Indication: BLOOD TESTOSTERONE DECREASED
     Dates: start: 201305, end: 201306
  2. ANDROGEL [Suspect]
     Dates: start: 201306, end: 20130813
  3. ANDROGEL [Suspect]
     Dates: start: 20130814
  4. GLUCOPHAGE [Concomitant]
     Indication: DIABETES MELLITUS
  5. LANTUS [Concomitant]
     Indication: DIABETES MELLITUS
  6. GLIMEPIRIDE [Concomitant]
     Indication: DIABETES MELLITUS

REACTIONS (3)
  - Weight increased [Not Recovered/Not Resolved]
  - Libido decreased [Not Recovered/Not Resolved]
  - Blood testosterone decreased [Not Recovered/Not Resolved]
